FAERS Safety Report 4774214-5 (Version None)
Quarter: 2005Q3

REPORT INFORMATION
  Report Type: 
  Country: None (occurrence: None)
  Receive Date: 20050914
  Receipt Date: 20050401
  Transmission Date: 20060218
  Serious: Yes (Other)
  Sender: FDA-Public Use
  Company Number: 163-20785-05040197

PATIENT
  Sex: Female

DRUGS (1)
  1. THALOMID [Suspect]
     Indication: LEIOMYOSARCOMA
     Dosage: 200MG QHS TITRATE BY 200MG Q 2WK TO MAX 1000MG QD, ORAL
     Route: 048
     Dates: start: 20020116, end: 20021011

REACTIONS (1)
  - DEPRESSED LEVEL OF CONSCIOUSNESS [None]
